FAERS Safety Report 7911422-6 (Version None)
Quarter: 2011Q4

REPORT INFORMATION
  Report Type: 
  Country: None (occurrence: None)
  Receive Date: 20111109
  Receipt Date: 20111027
  Transmission Date: 20120403
  Serious: Yes (Other)
  Sender: FDA-Public Use
  Company Number: 2011MA015652

PATIENT
  Age: 76 Year
  Sex: Female

DRUGS (7)
  1. NAPROXEN SODIUM [Concomitant]
  2. MULTI-VITAMIN [Concomitant]
  3. GLUCOSAMINE [Concomitant]
  4. PHENYTOIN [Suspect]
     Indication: COMPLEX PARTIAL SEIZURES
     Dates: start: 19890101
  5. HYDROCHLOROTHIAZIDE [Concomitant]
  6. ENALAPRIL MALEATE [Concomitant]
  7. LEVOTHYROXINE SODIUM [Concomitant]

REACTIONS (11)
  - BREAST CANCER METASTATIC [None]
  - SEDATION [None]
  - FALL [None]
  - INSOMNIA [None]
  - TOXICITY TO VARIOUS AGENTS [None]
  - CONVULSION [None]
  - SKIN FISSURES [None]
  - SKIN HAEMORRHAGE [None]
  - DRUG INTERACTION [None]
  - FATIGUE [None]
  - ATAXIA [None]
